FAERS Safety Report 12577781 (Version 1)
Quarter: 2016Q3

REPORT INFORMATION
  Report Type: Report from Study
  Country: US (occurrence: US)
  Receive Date: 20160721
  Receipt Date: 20160721
  Transmission Date: 20161109
  Serious: Yes (Hospitalization, Other)
  Sender: FDA-Public Use
  Company Number: US-ROCHE-1003365

PATIENT
  Age: 61 Year
  Sex: Female
  Weight: 72 kg

DRUGS (19)
  1. VISMODEGIB [Suspect]
     Active Substance: VISMODEGIB
     Route: 048
     Dates: start: 20111014
  2. VISMODEGIB [Suspect]
     Active Substance: VISMODEGIB
     Route: 048
     Dates: start: 20110722
  3. ERLOTINIB [Suspect]
     Active Substance: ERLOTINIB
     Route: 048
     Dates: start: 20110916
  4. ERLOTINIB [Suspect]
     Active Substance: ERLOTINIB
     Route: 048
     Dates: start: 20120406
  5. ERLOTINIB [Suspect]
     Active Substance: ERLOTINIB
     Route: 048
     Dates: start: 20120629
  6. VISMODEGIB [Suspect]
     Active Substance: VISMODEGIB
     Indication: CHOLANGIOCARCINOMA
     Route: 048
     Dates: start: 20110722, end: 20110927
  7. ERLOTINIB [Suspect]
     Active Substance: ERLOTINIB
     Route: 048
     Dates: start: 20110722
  8. ERLOTINIB [Suspect]
     Active Substance: ERLOTINIB
     Route: 048
     Dates: start: 20120504
  9. GEMCITABINE [Suspect]
     Active Substance: GEMCITABINE\GEMCITABINE HYDROCHLORIDE
     Route: 042
     Dates: start: 20111006, end: 20120706
  10. VISMODEGIB [Suspect]
     Active Substance: VISMODEGIB
     Dosage: LAST TREATMENT DATE: 24/AUG/2012
     Route: 048
     Dates: start: 20120504, end: 20120824
  11. ERLOTINIB [Suspect]
     Active Substance: ERLOTINIB
     Route: 048
     Dates: start: 20111014
  12. ERLOTINIB [Suspect]
     Active Substance: ERLOTINIB
     Dosage: LAST TREATMENT DATE: 24/AUG/2012
     Route: 048
     Dates: start: 20120727, end: 20120824
  13. ERLOTINIB [Suspect]
     Active Substance: ERLOTINIB
     Route: 048
     Dates: start: 20111006, end: 20120710
  14. VISMODEGIB [Suspect]
     Active Substance: VISMODEGIB
     Route: 048
     Dates: start: 20110916
  15. VISMODEGIB [Suspect]
     Active Substance: VISMODEGIB
     Route: 048
     Dates: start: 20120406
  16. GEMCITABINE [Suspect]
     Active Substance: GEMCITABINE\GEMCITABINE HYDROCHLORIDE
     Indication: CHOLANGIOCARCINOMA
     Route: 042
     Dates: start: 20110722, end: 20110923
  17. ERLOTINIB [Suspect]
     Active Substance: ERLOTINIB
     Indication: CHOLANGIOCARCINOMA
     Route: 048
     Dates: start: 20110722, end: 20110927
  18. ERLOTINIB [Suspect]
     Active Substance: ERLOTINIB
     Route: 048
     Dates: start: 20111014
  19. VISMODEGIB [Suspect]
     Active Substance: VISMODEGIB
     Route: 048
     Dates: start: 20111006, end: 20120711

REACTIONS (12)
  - Abdominal pain [Recovered/Resolved]
  - Aspartate aminotransferase increased [Recovered/Resolved]
  - Alanine aminotransferase increased [Recovering/Resolving]
  - Blood alkaline phosphatase increased [Recovered/Resolved]
  - Pain [Unknown]
  - Device occlusion [Recovered/Resolved]
  - Hypophosphataemia [Unknown]
  - Bile duct stenosis [Recovered/Resolved]
  - Blood bilirubin increased [Recovered/Resolved]
  - Cholangitis [Recovering/Resolving]
  - Neutrophil count decreased [Unknown]
  - Bilirubin conjugated increased [Recovered/Resolved]

NARRATIVE: CASE EVENT DATE: 20110927
